FAERS Safety Report 21868738 (Version 3)
Quarter: 2024Q2

REPORT INFORMATION
  Report Type: Report from Study
  Country: US (occurrence: US)
  Receive Date: 20230117
  Receipt Date: 20240507
  Transmission Date: 20240716
  Serious: Yes (Hospitalization)
  Sender: FDA-Public Use
  Company Number: US-GBT-019390

PATIENT
  Age: 32 Year
  Sex: Female

DRUGS (6)
  1. VOXELOTOR [Suspect]
     Active Substance: VOXELOTOR
     Indication: Sickle cell anaemia
     Dosage: OXBRYTA, 1500 MG, 1X/DAY
     Dates: start: 20210526, end: 20221013
  2. ELIQUIS [Concomitant]
     Active Substance: APIXABAN
     Indication: Sickle cell disease
     Dosage: 5 MG, 2X/DAY
     Route: 048
     Dates: start: 20220628
  3. FOLVITE [Concomitant]
     Active Substance: FOLIC ACID
     Indication: Sickle cell disease
     Dosage: 1 MG
     Route: 048
     Dates: start: 20111027
  4. CHOLECALCIFEROL [Concomitant]
     Active Substance: CHOLECALCIFEROL
     Indication: Sickle cell disease
     Dosage: 50 MCG
     Route: 048
     Dates: start: 20191014
  5. ROXICODONE [Concomitant]
     Active Substance: OXYCODONE HYDROCHLORIDE
     Indication: Sickle cell disease
     Dosage: 10 MG, 4X/HOUR
     Route: 048
     Dates: start: 20160629
  6. ACETAMINOPHEN\ASCORBIC ACID [Concomitant]
     Active Substance: ACETAMINOPHEN\ASCORBIC ACID
     Indication: Prophylaxis
     Dosage: 81 MG, 1X/DAY
     Route: 048
     Dates: start: 20190104

REACTIONS (1)
  - Pneumonia [Recovered/Resolved]

NARRATIVE: CASE EVENT DATE: 20221205
